FAERS Safety Report 23632633 (Version 1)
Quarter: 2024Q1

REPORT INFORMATION
  Report Type: Spontaneous
  Country: FR (occurrence: FR)
  Receive Date: 20240314
  Receipt Date: 20240314
  Transmission Date: 20240410
  Serious: Yes (Hospitalization)
  Sender: FDA-Public Use
  Company Number: None

PATIENT
  Age: 3 Year
  Sex: Female
  Weight: 16 kg

DRUGS (4)
  1. ILARIS [Suspect]
     Active Substance: CANAKINUMAB
     Indication: Still^s disease
     Dosage: 150 MG, Q2W
     Route: 058
     Dates: start: 20230204, end: 20230422
  2. ILARIS [Suspect]
     Active Substance: CANAKINUMAB
     Dosage: 150 MG, Q2W
     Route: 058
     Dates: start: 20230727
  3. METHYLPREDNISOLONE [Suspect]
     Active Substance: METHYLPREDNISOLONE
     Indication: Still^s disease
     Dosage: 1 MG, QD
     Route: 048
     Dates: start: 20221217
  4. SIROLIMUS [Suspect]
     Active Substance: SIROLIMUS
     Indication: Still^s disease
     Dosage: 4 MG, QW
     Route: 065
     Dates: start: 20230706, end: 20240124

REACTIONS (3)
  - Pneumococcal bacteraemia [Recovering/Resolving]
  - Lung disorder [Recovering/Resolving]
  - Culture stool positive [Recovering/Resolving]

NARRATIVE: CASE EVENT DATE: 20240105
